FAERS Safety Report 9677266 (Version 1)
Quarter: 2013Q4

REPORT INFORMATION
  Report Type: Spontaneous
  Country: US (occurrence: None)
  Receive Date: 20131107
  Receipt Date: 20131107
  Transmission Date: 20140711
  Serious: Yes (Hospitalization, Other)
  Sender: FDA-Public Use
  Company Number: None

PATIENT
  Age: 26 Year
  Sex: Female
  Weight: 113.4 kg

DRUGS (1)
  1. INSANE AMP^D UP 350 MG PER CAPSULE [Suspect]
     Indication: WEIGHT CONTROL
     Dosage: 2 PILLS
     Route: 048
     Dates: start: 20130812, end: 20130813

REACTIONS (1)
  - Vaginal haemorrhage [None]
